FAERS Safety Report 8917054 (Version 1)
Quarter: 2012Q4

REPORT INFORMATION
  Report Type: 
  Country: FR (occurrence: FR)
  Receive Date: 20121120
  Receipt Date: 20121120
  Transmission Date: 20130627
  Serious: Yes (Hospitalization)
  Sender: FDA-Public Use
  Company Number: FR-JNJFOC-20121105553

PATIENT
  Age: 90 Year
  Sex: Female

DRUGS (4)
  1. HALDOL [Suspect]
     Indication: AGITATION
     Route: 030
     Dates: start: 20121004, end: 20121004
  2. EBIXA [Concomitant]
     Indication: DEMENTIA ALZHEIMER^S TYPE
     Route: 048
     Dates: end: 20121008
  3. IPERTEN [Concomitant]
     Indication: PRODUCT USED FOR UNKNOWN INDICATION
     Route: 065
  4. SERESTA [Concomitant]
     Indication: PRODUCT USED FOR UNKNOWN INDICATION
     Route: 065

REACTIONS (3)
  - Epilepsy [Recovered/Resolved]
  - Somnolence [Recovered/Resolved]
  - Confusional state [Not Recovered/Not Resolved]
